FAERS Safety Report 6171733-4 (Version None)
Quarter: 2009Q2

REPORT INFORMATION
  Report Type: 
  Country: None (occurrence: None)
  Receive Date: 20090429
  Receipt Date: 20090420
  Transmission Date: 20091009
  Serious: Yes (Hospitalization)
  Sender: FDA-Public Use
  Company Number: B0572137A

PATIENT
  Age: 44 Year
  Sex: Male

DRUGS (3)
  1. COMBIVIR [Suspect]
     Indication: HIV INFECTION
     Route: 048
     Dates: start: 20020601, end: 20080704
  2. KALETRA [Suspect]
     Indication: HIV INFECTION
     Route: 048
     Dates: start: 20020601, end: 20080704
  3. ATRIPLA [Concomitant]
     Dates: start: 20080704, end: 20090102

REACTIONS (5)
  - ARTHRALGIA [None]
  - DRUG INTERACTION [None]
  - ERECTILE DYSFUNCTION [None]
  - OSTEONECROSIS [None]
  - PAIN [None]
